FAERS Safety Report 24290770 (Version 8)
Quarter: 2025Q2

REPORT INFORMATION
  Report Type: Report from Study
  Country: JP (occurrence: JP)
  Receive Date: 20240906
  Receipt Date: 20250529
  Transmission Date: 20250717
  Serious: Yes (Hospitalization, Other)
  Sender: NOVARTIS
  Company Number: JP-002147023-NVSC2022JP304841

PATIENT
  Age: 23 Month
  Sex: Male
  Weight: 11 kg

DRUGS (21)
  1. ZOLGENSMA [Suspect]
     Active Substance: ONASEMNOGENE ABEPARVOVEC-XIOI
     Indication: Spinal muscular atrophy
     Route: 041
     Dates: start: 20220525, end: 20220525
  2. NITROPRUSSIDE [Suspect]
     Active Substance: NITROPRUSSIDE
     Indication: Blood pressure management
     Route: 065
     Dates: start: 20220601, end: 20220603
  3. NITROPRUSSIDE [Suspect]
     Active Substance: NITROPRUSSIDE
     Indication: Thrombotic microangiopathy
  4. METHYLDOPA [Suspect]
     Active Substance: METHYLDOPA
     Indication: Blood pressure management
     Dosage: 100 MG, TID
     Route: 048
     Dates: start: 20220609, end: 202301
  5. METHYLDOPA [Suspect]
     Active Substance: METHYLDOPA
     Indication: Thrombotic microangiopathy
  6. PREDNISOLONE [Concomitant]
     Active Substance: PREDNISOLONE
     Indication: Product used for unknown indication
     Route: 048
     Dates: start: 20220524, end: 20220529
  7. PREDNISOLONE [Concomitant]
     Active Substance: PREDNISOLONE
     Route: 048
     Dates: start: 20220529, end: 20220607
  8. PREDNISOLONE [Concomitant]
     Active Substance: PREDNISOLONE
     Route: 042
     Dates: start: 20220607, end: 20220612
  9. PREDNISOLONE [Concomitant]
     Active Substance: PREDNISOLONE
     Route: 042
     Dates: start: 20220612, end: 20220624
  10. PREDNISOLONE [Concomitant]
     Active Substance: PREDNISOLONE
     Route: 048
     Dates: start: 20220624, end: 20220708
  11. PREDNISOLONE [Concomitant]
     Active Substance: PREDNISOLONE
     Route: 048
     Dates: start: 20220708, end: 20220721
  12. PREDNISOLONE [Concomitant]
     Active Substance: PREDNISOLONE
     Route: 048
     Dates: start: 20220810, end: 20220901
  13. PREDNISOLONE [Concomitant]
     Active Substance: PREDNISOLONE
     Route: 048
     Dates: start: 20220901, end: 20220908
  14. PREDNISOLONE [Concomitant]
     Active Substance: PREDNISOLONE
     Route: 048
     Dates: start: 20220908, end: 20220915
  15. PREDNISOLONE [Concomitant]
     Active Substance: PREDNISOLONE
     Route: 048
     Dates: start: 20220915, end: 20220922
  16. NUSINERSEN [Concomitant]
     Active Substance: NUSINERSEN
     Indication: Product used for unknown indication
     Route: 065
     Dates: start: 20210722
  17. NUSINERSEN [Concomitant]
     Active Substance: NUSINERSEN
     Route: 065
     Dates: start: 20210805
  18. NUSINERSEN [Concomitant]
     Active Substance: NUSINERSEN
     Route: 065
     Dates: start: 20210819
  19. NUSINERSEN [Concomitant]
     Active Substance: NUSINERSEN
     Route: 065
     Dates: start: 20210923
  20. NUSINERSEN [Concomitant]
     Active Substance: NUSINERSEN
     Route: 065
     Dates: start: 20220119
  21. FAMOTIDINE [Concomitant]
     Active Substance: FAMOTIDINE
     Indication: Product used for unknown indication
     Dosage: 0.5 MG/KG, BID
     Route: 065
     Dates: start: 20220525

REACTIONS (30)
  - Thrombotic microangiopathy [Recovering/Resolving]
  - Platelet count decreased [Recovered/Resolved]
  - Oliguria [Unknown]
  - Haemolysis [Unknown]
  - Haemoglobinuria [Unknown]
  - Myoglobinuria [Unknown]
  - Haematuria [Recovering/Resolving]
  - Pyrexia [Recovered/Resolved]
  - Vomiting [Recovered/Resolved]
  - Acute kidney injury [Recovering/Resolving]
  - Fluid retention [Unknown]
  - Hypertension [Unknown]
  - Oedema peripheral [Unknown]
  - Pleural effusion [Recovering/Resolving]
  - Anaemia [Recovered/Resolved]
  - Chronic kidney disease [Recovered/Resolved with Sequelae]
  - Hepatic function abnormal [Recovering/Resolving]
  - Aspartate aminotransferase increased [Recovered/Resolved]
  - Alanine aminotransferase increased [Recovered/Resolved]
  - Bradycardia [Unknown]
  - Syncope [Recovered/Resolved]
  - Presyncope [Unknown]
  - Arrhythmia [Recovered/Resolved]
  - Hepatic enzyme increased [Recovered/Resolved]
  - Mood altered [Recovering/Resolving]
  - Decreased appetite [Recovering/Resolving]
  - Faeces soft [Unknown]
  - Toxicity to various agents [Unknown]
  - Acidosis [Unknown]
  - Blood lactate dehydrogenase increased [Recovered/Resolved]

NARRATIVE: CASE EVENT DATE: 20220526
